FAERS Safety Report 7455747-X (Version None)
Quarter: 2011Q2

REPORT INFORMATION
  Report Type: 
  Country: None (occurrence: None)
  Receive Date: 20110503
  Receipt Date: 20110118
  Transmission Date: 20111010
  Serious: Yes (Hospitalization)
  Sender: FDA-Public Use
  Company Number: PHFR2010GB05433

PATIENT
  Sex: Male

DRUGS (5)
  1. SIMVASTATIN [Concomitant]
     Dosage: 40 MG, QD
     Route: 048
  2. CLOZARIL [Suspect]
     Dosage: 350 MG, QD
     Route: 048
  3. CLOZARIL [Suspect]
     Dosage: 300 MG, QD
     Route: 048
     Dates: end: 20101101
  4. CLOZARIL [Suspect]
     Indication: SCHIZOPHRENIA
     Dosage: 400 MG, QD
     Route: 048
     Dates: start: 20050801, end: 20101130
  5. METFORMIN HYDROCHLORIDE [Concomitant]
     Dosage: 1 G, QD
     Route: 048

REACTIONS (3)
  - ANTIPSYCHOTIC DRUG LEVEL INCREASED [None]
  - HEART RATE INCREASED [None]
  - INCORRECT DOSE ADMINISTERED [None]
